FAERS Safety Report 12647809 (Version 1)
Quarter: 2016Q3

REPORT INFORMATION
  Report Type: Spontaneous
  Country: US (occurrence: None)
  Receive Date: 20160811
  Receipt Date: 20160811
  Transmission Date: 20161109
  Serious: Yes (Hospitalization)
  Sender: FDA-Public Use
  Company Number: None

PATIENT
  Age: 67 Year
  Sex: Male
  Weight: 113.5 kg

DRUGS (2)
  1. ALLOPURINOL. [Suspect]
     Active Substance: ALLOPURINOL
     Route: 048
     Dates: start: 20150701, end: 20160524
  2. IPILIMUMAB [Suspect]
     Active Substance: IPILIMUMAB
     Dates: start: 20160501, end: 20160524

REACTIONS (4)
  - Pruritus [None]
  - Urticaria [None]
  - Metastatic neoplasm [None]
  - Melanoma recurrent [None]

NARRATIVE: CASE EVENT DATE: 20160524
